FAERS Safety Report 8190381-8 (Version None)
Quarter: 2012Q1

REPORT INFORMATION
  Report Type: 
  Country: None (occurrence: None)
  Receive Date: 20120305
  Receipt Date: 20120227
  Transmission Date: 20120608
  Serious: Yes (Other)
  Sender: FDA-Public Use
  Company Number: 2012MA002646

PATIENT
  Age: 57 Year
  Sex: Male

DRUGS (2)
  1. MICONAZOLE NITRATE [Suspect]
     Indication: PRODUCT USED FOR UNKNOWN INDICATION
     Dosage: 100 MG;QD;PO
     Route: 048
  2. WARFARIN SODIUM [Suspect]
     Dosage: 10 MG;QD;

REACTIONS (3)
  - RETROPERITONEAL HAEMORRHAGE [None]
  - INTERNATIONAL NORMALISED RATIO INCREASED [None]
  - DRUG INTERACTION [None]
